FAERS Safety Report 6707326-7 (Version None)
Quarter: 2010Q2

REPORT INFORMATION
  Report Type: 
  Country: None (occurrence: None)
  Receive Date: 20100503
  Receipt Date: 20091104
  Transmission Date: 20101027
  Serious: No
  Sender: FDA-Public Use
  Company Number: US-ASTRAZENECA-2009SE12749

PATIENT
  Age: 44 Year
  Sex: Male
  Weight: 117.9 kg

DRUGS (2)
  1. NEXIUM [Suspect]
     Indication: GASTROOESOPHAGEAL REFLUX DISEASE
     Route: 048
     Dates: start: 20030101, end: 20090101
  2. CLARITON OCT [Concomitant]

REACTIONS (3)
  - DRY MOUTH [None]
  - OSTEOPENIA [None]
  - TINNITUS [None]
